FAERS Safety Report 25185525 (Version 1)
Quarter: 2025Q2

REPORT INFORMATION
  Report Type: Spontaneous
  Country: US (occurrence: US)
  Receive Date: 20250410
  Receipt Date: 20250410
  Transmission Date: 20250717
  Serious: Yes (Death, Other)
  Sender: DR REDDYS
  Company Number: US-DRL-USA-USA/2025/04/005300

PATIENT
  Age: 20 Month
  Sex: Female

DRUGS (6)
  1. HEPARIN [Suspect]
     Active Substance: HEPARIN SODIUM
     Indication: Anticoagulant therapy
  2. Sebelipase [Concomitant]
     Indication: Lysosomal acid lipase deficiency
  3. NOREPINEPHRINE [Concomitant]
     Active Substance: NOREPINEPHRINE
     Indication: Shock
  4. EPINEPHRINE [Concomitant]
     Active Substance: EPINEPHRINE
     Indication: Shock
  5. VASOPRESSIN [Concomitant]
     Active Substance: VASOPRESSIN
     Indication: Shock
  6. HYDROCORTISONE [Concomitant]
     Active Substance: HYDROCORTISONE
     Indication: Shock

REACTIONS (2)
  - Drug ineffective [Fatal]
  - Ischaemic stroke [Fatal]
